FAERS Safety Report 9742232 (Version 1)
Quarter: 2013Q4

REPORT INFORMATION
  Report Type: Spontaneous
  Country: US (occurrence: US)
  Receive Date: 20131210
  Receipt Date: 20131210
  Transmission Date: 20140711
  Serious: No
  Sender: FDA-Public Use
  Company Number: US-BAYER-2013-143101

PATIENT
  Age: 29 Year
  Sex: Female

DRUGS (2)
  1. GIANVI [Suspect]
     Indication: CONTRACEPTION
     Dosage: UNK
     Route: 048
     Dates: start: 201306, end: 201308
  2. GIANVI [Suspect]
     Indication: MENSTRUATION IRREGULAR

REACTIONS (5)
  - Dysmenorrhoea [None]
  - Menstrual disorder [None]
  - Anxiety [None]
  - Panic attack [Recovered/Resolved]
  - Rash [Recovered/Resolved]
